FAERS Safety Report 8835161 (Version 1)
Quarter: 2012Q4

REPORT INFORMATION
  Report Type: Report from Study
  Country: IT (occurrence: IT)
  Receive Date: 20121011
  Receipt Date: 20121011
  Transmission Date: 20130627
  Serious: Yes (Death, Life-Threatening)
  Sender: FDA-Public Use
  Company Number: IT-ROCHE-786053

PATIENT
  Age: 35 Year
  Sex: Female

DRUGS (3)
  1. AVASTIN [Suspect]
     Indication: COLON CANCER
     Dosage: FREQUENCY: UNKNOWN
     Route: 042
     Dates: start: 20101118, end: 20101118
  2. CAPECITABINE [Concomitant]
     Dosage: ROUTE: OS, FREQUENCY: UNKNOWN
     Route: 048
     Dates: start: 20101007, end: 20101026
  3. OXALIPLATIN [Concomitant]
     Dosage: FREQUENCY: UNKNOWN
     Route: 042
     Dates: start: 20101007, end: 20101118

REACTIONS (3)
  - Large intestine perforation [Recovering/Resolving]
  - Rectal perforation [Recovered/Resolved with Sequelae]
  - Death [Fatal]
